FAERS Safety Report 7364895-4 (Version None)
Quarter: 2011Q1

REPORT INFORMATION
  Report Type: 
  Country: None (occurrence: None)
  Receive Date: 20110316
  Receipt Date: 20110316
  Transmission Date: 20110831
  Serious: Yes (Hospitalization)
  Sender: FDA-Public Use
  Company Number: None

PATIENT
  Sex: Female
  Weight: 62 kg

DRUGS (4)
  1. BELATACEPT 250 MG (25 MG/ML) BRISTOL-MYERS SQUIBB [Suspect]
     Indication: IMMUNOSUPPRESSION
     Dosage: 5 MG/KG
     Dates: start: 20100211
  2. RAPAMUNE [Concomitant]
  3. MULTI-VITAMIN [Concomitant]
  4. TOPROL-XL [Concomitant]

REACTIONS (4)
  - TACHYCARDIA [None]
  - PYURIA [None]
  - HYPOTENSION [None]
  - INFLUENZA [None]
